FAERS Safety Report 5616153-3 (Version None)
Quarter: 2008Q1

REPORT INFORMATION
  Report Type: 
  Country: None (occurrence: None)
  Receive Date: 20080206
  Receipt Date: 20080129
  Transmission Date: 20080703
  Serious: Yes (Death)
  Sender: FDA-Public Use
  Company Number: US-GENENTECH-255141

PATIENT
  Sex: Female
  Weight: 49.07 kg

DRUGS (2)
  1. BEVACIZUMAB [Suspect]
     Indication: NON-SMALL CELL LUNG CANCER
     Dosage: 1558 UNK, Q3W
     Route: 042
     Dates: start: 20071206
  2. ERLOTINIB NOT ADMINISTERED [Suspect]

REACTIONS (1)
  - DEATH [None]
